FAERS Safety Report 15204712 (Version 2)
Quarter: 2018Q4

REPORT INFORMATION
  Report Type: Spontaneous
  Country: IT (occurrence: IT)
  Receive Date: 20180726
  Receipt Date: 20180816
  Transmission Date: 20190204
  Serious: Yes (Hospitalization)
  Sender: FDA-Public Use
  Company Number: PHHY2018IT052890

PATIENT
  Age: 21 Year
  Sex: Female

DRUGS (5)
  1. ESCITALOPRAM [Suspect]
     Active Substance: ESCITALOPRAM OXALATE
     Indication: INTENTIONAL SELF-INJURY
     Dosage: 140 MG, TOTAL
     Route: 048
     Dates: start: 20180126, end: 20180126
  2. ZITROMAX [Suspect]
     Active Substance: AZITHROMYCIN
     Indication: INTENTIONAL SELF-INJURY
     Dosage: 1500 MG, TOTAL
     Route: 048
     Dates: start: 20180126, end: 20180126
  3. ARIPIPRAZOLE. [Suspect]
     Active Substance: ARIPIPRAZOLE
     Indication: INTENTIONAL SELF-INJURY
     Dosage: 210 MG, TOTAL
     Route: 048
     Dates: start: 20180126, end: 20180126
  4. ALPRAZOLAM. [Suspect]
     Active Substance: ALPRAZOLAM
     Indication: INTENTIONAL SELF-INJURY
     Dosage: 15 ML, TOTAL
     Route: 048
     Dates: start: 20180126, end: 20180126
  5. PROZIN (CHLORPROMAZINE HYDROCHLORIDE) [Suspect]
     Active Substance: CHLORPROMAZINE HYDROCHLORIDE
     Indication: INTENTIONAL SELF-INJURY
     Dosage: 1200 MG, TOTAL
     Route: 048
     Dates: start: 20180126, end: 20180126

REACTIONS (1)
  - Sopor [Recovering/Resolving]

NARRATIVE: CASE EVENT DATE: 20180126
